FAERS Safety Report 10435040 (Version 2)
Quarter: 2014Q4

REPORT INFORMATION
  Report Type: Spontaneous
  Country: US (occurrence: None)
  Receive Date: 20140815
  Receipt Date: 20141208
  Transmission Date: 20150528
  Serious: No
  Sender: FDA-Public Use
  Company Number: 2014TUS005001

PATIENT
  Age: 41 Year
  Sex: Female
  Weight: 78.9 kg

DRUGS (7)
  1. PROPRANOLOL [Concomitant]
     Active Substance: PROPRANOLOL\PROPRANOLOL HYDROCHLORIDE
  2. BRINTELLIX [Suspect]
     Active Substance: VORTIOXETINE HYDROBROMIDE
     Indication: DEPRESSION
     Route: 048
     Dates: start: 20140513, end: 20140522
  3. INDERAL LA [Suspect]
     Active Substance: PROPRANOLOL HYDROCHLORIDE
     Indication: MIGRAINE
     Dates: start: 20140513, end: 20140606
  4. XANAX [Concomitant]
     Active Substance: ALPRAZOLAM
  5. CHLORTHALIDONE (CHLORTALIDONE) [Concomitant]
     Active Substance: CHLORTHALIDONE
  6. VICOPROFEN (HYDROCODONE BITARTRATE, IBUPROFEN) [Concomitant]
  7. AMBIEN [Concomitant]
     Active Substance: ZOLPIDEM TARTRATE

REACTIONS (3)
  - Syncope [None]
  - Dizziness [None]
  - Dysarthria [None]

NARRATIVE: CASE EVENT DATE: 20140522
